FAERS Safety Report 4665344-7 (Version None)
Quarter: 2005Q2

REPORT INFORMATION
  Report Type: 
  Country: None (occurrence: None)
  Receive Date: 20050517
  Receipt Date: 20050215
  Transmission Date: 20051028
  Serious: No
  Sender: FDA-Public Use
  Company Number: S05-USA-00798-01

PATIENT
  Age: 79 Year
  Sex: Female

DRUGS (7)
  1. NAMENDA [Suspect]
     Indication: CONFUSIONAL STATE
     Dosage: 5 MG QD PO
     Route: 048
     Dates: start: 20050101, end: 20050101
  2. NAMENDA [Suspect]
     Indication: PARKINSON'S DISEASE
     Dosage: 5 MG QD PO
     Route: 048
     Dates: start: 20050101, end: 20050101
  3. NAMENDA [Suspect]
     Indication: CONFUSIONAL STATE
     Dosage: 5 MG QD PO
     Route: 048
     Dates: start: 20050131, end: 20050214
  4. NAMENDA [Suspect]
     Indication: PARKINSON'S DISEASE
     Dosage: 5 MG QD PO
     Route: 048
     Dates: start: 20050131, end: 20050214
  5. SINEMET [Concomitant]
  6. FOSAMAX [Concomitant]
  7. MILK OF MAGNESIA TAB [Concomitant]

REACTIONS (1)
  - CONFUSIONAL STATE [None]
